FAERS Safety Report 5315242-0 (Version None)
Quarter: 2007Q2

REPORT INFORMATION
  Report Type: 
  Country: None (occurrence: None)
  Receive Date: 20070502
  Receipt Date: 20070420
  Transmission Date: 20071010
  Serious: Yes (Hospitalization)
  Sender: FDA-Public Use
  Company Number: JP-PFIZER INC-2007027600

PATIENT
  Sex: Female
  Weight: 37 kg

DRUGS (6)
  1. CABASER [Suspect]
     Indication: PARKINSON'S DISEASE
     Route: 048
     Dates: start: 20040223, end: 20070203
  2. HALCION [Suspect]
     Indication: INSOMNIA
     Route: 048
     Dates: start: 20040223, end: 20070203
  3. NEODOPASOL [Suspect]
     Indication: PARKINSON'S DISEASE
     Dosage: TEXT:1 TABLET
     Route: 048
  4. PURSENNID [Concomitant]
     Route: 048
  5. ALMARL [Concomitant]
     Route: 048
  6. KETOPROFEN [Concomitant]
     Route: 062

REACTIONS (2)
  - DELUSION [None]
  - HALLUCINATION [None]
